FAERS Safety Report 9334811 (Version 1)
Quarter: 2013Q2

REPORT INFORMATION
  Report Type: Spontaneous
  Country: US (occurrence: US)
  Receive Date: 20130606
  Receipt Date: 20130606
  Transmission Date: 20140414
  Serious: No
  Sender: FDA-Public Use
  Company Number: US-AMGEN-USASP2012077045

PATIENT
  Age: 74 Year
  Sex: Female

DRUGS (19)
  1. PROLIA [Suspect]
     Indication: OSTEOPENIA
     Dosage: UNK
     Dates: start: 20121018
  2. PROLIA [Suspect]
  3. ASPIRIN [Concomitant]
     Dosage: UNK
  4. PRAVASTATIN [Concomitant]
     Dosage: 20 MG, QD
  5. PRAVASTATIN [Concomitant]
  6. PRAVASTATIN [Concomitant]
  7. METFORMIN [Concomitant]
     Dosage: 250 MG, QD
  8. METFORMIN [Concomitant]
  9. METFORMIN [Concomitant]
  10. LISINOPRIL [Concomitant]
     Dosage: 2.5 UNK, UNK
  11. LISINOPRIL [Concomitant]
  12. LISINOPRIL [Concomitant]
  13. MOBIC [Concomitant]
     Dosage: UNK
  14. MAGNESIUM CITRATE [Concomitant]
     Dosage: 200 MG, QD
  15. CALCIUM + VIT D [Concomitant]
  16. ZETIA [Concomitant]
  17. CITRACAL                           /00751520/ [Concomitant]
  18. MAGNESIUM [Concomitant]
  19. CRANBERRY CAPSULE [Concomitant]

REACTIONS (7)
  - Contusion [Unknown]
  - Pain [Unknown]
  - Sensitivity of teeth [Unknown]
  - Hypoaesthesia [Unknown]
  - Musculoskeletal discomfort [Unknown]
  - Back pain [Unknown]
  - Pruritus [Unknown]
